FAERS Safety Report 20684047 (Version 1)
Quarter: 2022Q2

REPORT INFORMATION
  Report Type: Spontaneous
  Country: US (occurrence: US)
  Receive Date: 20220407
  Receipt Date: 20220407
  Transmission Date: 20220721
  Serious: Yes (Hospitalization, Other)
  Sender: FDA-Public Use
  Company Number: US-ORG100016242-2022000547

PATIENT

DRUGS (1)
  1. EXPAREL [Suspect]
     Active Substance: BUPIVACAINE
     Indication: Postoperative analgesia
     Route: 065

REACTIONS (5)
  - Pulmonary air leakage [Unknown]
  - Acute kidney injury [Unknown]
  - Ileus [Unknown]
  - Pneumothorax [Unknown]
  - Atrial fibrillation [Unknown]
